FAERS Safety Report 14639044 (Version 2)
Quarter: 2018Q4

REPORT INFORMATION
  Report Type: Spontaneous
  Country: FR (occurrence: FR)
  Receive Date: 20180315
  Receipt Date: 20181023
  Transmission Date: 20190204
  Serious: Yes (Other)
  Sender: FDA-Public Use
  Company Number: FR-MERCK KGAA-2043767

PATIENT
  Sex: Female

DRUGS (1)
  1. EUTHYROX [Suspect]
     Active Substance: LEVOTHYROXINE SODIUM
     Indication: PRODUCT USED FOR UNKNOWN INDICATION

REACTIONS (28)
  - Loss of personal independence in daily activities [None]
  - Asthma [None]
  - Headache [None]
  - Gastrointestinal disorder [None]
  - Insomnia [None]
  - Tearfulness [None]
  - Disturbance in attention [None]
  - Somnolence [None]
  - Visual impairment [None]
  - Ocular rosacea [Recovered/Resolved]
  - Arthralgia [None]
  - Memory impairment [None]
  - Dyspnoea [None]
  - Stress [None]
  - Apathy [None]
  - Low density lipoprotein decreased [None]
  - Fatigue [None]
  - Depression [None]
  - Social avoidant behaviour [None]
  - Agitation [None]
  - Pain [None]
  - Biliary colic [None]
  - Hepatic pain [None]
  - Asthenia [None]
  - Dizziness [None]
  - Crying [None]
  - Aggression [None]
  - Antisocial behaviour [None]

NARRATIVE: CASE EVENT DATE: 2017
